FAERS Safety Report 22783272 (Version 2)
Quarter: 2024Q1

REPORT INFORMATION
  Report Type: Spontaneous
  Country: US (occurrence: US)
  Receive Date: 20230803
  Receipt Date: 20240129
  Transmission Date: 20240410
  Serious: No
  Sender: FDA-Public Use
  Company Number: US-SAREPTA THERAPEUTICS INC.-SRP2023-003533

PATIENT
  Age: 13 Year
  Sex: Male
  Weight: 108.84 kg

DRUGS (2)
  1. AMONDYS 45 [Suspect]
     Active Substance: CASIMERSEN
     Indication: Duchenne muscular dystrophy
     Dosage: 4100 MILLIGRAM, WEEKLY
     Route: 042
     Dates: start: 20230524, end: 20230615
  2. AMONDYS 45 [Suspect]
     Active Substance: CASIMERSEN
     Dosage: 4100 MILLIGRAM, WEEKLY
     Route: 042
     Dates: start: 20230629

REACTIONS (1)
  - Poor venous access [Unknown]

NARRATIVE: CASE EVENT DATE: 20230622
